FAERS Safety Report 14187980 (Version 2)
Quarter: 2018Q1

REPORT INFORMATION
  Report Type: Spontaneous
  Country: US (occurrence: US)
  Receive Date: 20171114
  Receipt Date: 20180115
  Transmission Date: 20180508
  Serious: Yes (Hospitalization)
  Sender: FDA-Public Use
  Company Number: US-SA-2017SA223588

PATIENT
  Age: 51 Year
  Sex: Male
  Weight: 120.7 kg

DRUGS (3)
  1. LEMTRADA [Suspect]
     Active Substance: ALEMTUZUMAB
     Route: 041
     Dates: start: 20171023, end: 20171027
  2. ASA [Concomitant]
     Active Substance: ASPIRIN
     Dosage: DOSE: 81
  3. ACYCLOVIR. [Concomitant]
     Active Substance: ACYCLOVIR
     Indication: ANTIVIRAL PROPHYLAXIS
     Dosage: DOSE: 800

REACTIONS (3)
  - Fluid overload [Recovered/Resolved]
  - Cardiac failure congestive [Recovered/Resolved]
  - Thirst [Recovered/Resolved]

NARRATIVE: CASE EVENT DATE: 201710
